FAERS Safety Report 19693685 (Version 2)
Quarter: 2021Q3

REPORT INFORMATION
  Report Type: Spontaneous
  Country: CO (occurrence: CO)
  Receive Date: 20210812
  Receipt Date: 20210823
  Transmission Date: 20211014
  Serious: Yes (Other)
  Sender: FDA-Public Use
  Company Number: CO-BAYER-2021-191090

PATIENT
  Age: 10 Year
  Sex: Male
  Weight: 25 kg

DRUGS (2)
  1. KOVALTRY [Suspect]
     Active Substance: ANTIHEMOPHILIC FACTOR, HUMAN RECOMBINANT
     Indication: FACTOR VIII DEFICIENCY
     Dosage: 1000 IU, PRN (PROPHYLAXIS DOSE)
     Route: 042
     Dates: start: 20210803, end: 20210803
  2. KOVALTRY [Suspect]
     Active Substance: ANTIHEMOPHILIC FACTOR, HUMAN RECOMBINANT
     Indication: FACTOR VIII DEFICIENCY
     Dosage: 1000 IU, PRN
     Route: 042
     Dates: start: 20201217

REACTIONS (3)
  - Blood pressure decreased [Recovered/Resolved]
  - Seizure [Unknown]
  - Presyncope [Unknown]

NARRATIVE: CASE EVENT DATE: 20210803
